FAERS Safety Report 6409956-9 (Version None)
Quarter: 2009Q4

REPORT INFORMATION
  Report Type: 
  Country: None (occurrence: None)
  Receive Date: 20091022
  Receipt Date: 20091009
  Transmission Date: 20100525
  Serious: Yes (Hospitalization, Other)
  Sender: FDA-Public Use
  Company Number: GB-NAPPMUNDI-GBR-2009-0005561

PATIENT
  Age: 41 Year
  Sex: Female

DRUGS (13)
  1. OXYNORM [Suspect]
     Indication: PAIN
     Dosage: 10 MG, DAILY
     Route: 048
     Dates: start: 20090904, end: 20090904
  2. TARGINACT 10MG/5MG [Concomitant]
     Dosage: 10 MG, BID
     Route: 065
  3. TRAMADOL HCL [Concomitant]
     Dosage: UNK
  4. DIAZEPAM [Concomitant]
     Dosage: 2 MG, TID PRN
  5. DIAZEPAM [Concomitant]
     Dosage: 5 MG, BID PRN
  6. FOLIC ACID [Concomitant]
     Dosage: 5 MG, DAILY
  7. HYDROXOCOBALAMIN [Concomitant]
     Dosage: 1 MG/ML, EVERY 3 MONTHS
  8. WARFARIN SODIUM [Concomitant]
     Dosage: 1 MG, UNK
  9. WARFARIN SODIUM [Concomitant]
     Dosage: 3 MG, UNK
  10. CO-CODAMOL [Concomitant]
     Dosage: 2 UNK, QID
  11. TEICOPLANIN [Concomitant]
     Indication: SPINAL CORD INFECTION
     Dosage: UNK
  12. MEPERIDINE HCL [Concomitant]
     Dosage: UNK
     Route: 030
  13. OMEPRAZOLE [Concomitant]
     Dosage: 20 MG, UNK

REACTIONS (3)
  - BLISTER [None]
  - ERYTHEMA [None]
  - PANIC ATTACK [None]
